FAERS Safety Report 9209346 (Version 1)
Quarter: 2013Q2

REPORT INFORMATION
  Report Type: Spontaneous
  Country: US (occurrence: None)
  Receive Date: 20130403
  Receipt Date: 20130403
  Transmission Date: 20140414
  Serious: Yes (Life-Threatening, Disabling, Other)
  Sender: FDA-Public Use
  Company Number: None

PATIENT
  Sex: Female
  Weight: 68.04 kg

DRUGS (1)
  1. CREON [Suspect]
     Indication: PANCREATITIS
     Dosage: 2 CAPS BRFORE MEALS
     Dates: start: 201101, end: 201303

REACTIONS (20)
  - Headache [None]
  - Depression [None]
  - Oropharyngeal pain [None]
  - Abdominal pain upper [None]
  - Nausea [None]
  - Oedema mouth [None]
  - Swelling face [None]
  - Lip swelling [None]
  - Dizziness [None]
  - Blood glucose increased [None]
  - Blood glucose decreased [None]
  - Abdominal distension [None]
  - Pruritus [None]
  - Feeling abnormal [None]
  - Pollakiuria [None]
  - Hunger [None]
  - Asthenia [None]
  - Fatigue [None]
  - Dysphonia [None]
  - Malaise [None]
